FAERS Safety Report 14629060 (Version 5)
Quarter: 2019Q1

REPORT INFORMATION
  Report Type: Report from Study
  Country: None (occurrence: US)
  Receive Date: 20180313
  Receipt Date: 20190306
  Transmission Date: 20190417
  Serious: Yes (Other)
  Sender: FDA-Public Use
  Company Number: US-ABBVIE-18K-163-2281051-00

PATIENT
  Age: 63 Year
  Sex: Female
  Weight: 91.71 kg

DRUGS (4)
  1. FOLIC ACID. [Concomitant]
     Active Substance: FOLIC ACID
     Indication: RHEUMATOID ARTHRITIS
  2. PREDNISONE. [Concomitant]
     Active Substance: PREDNISONE
     Indication: RHEUMATOID ARTHRITIS
  3. HUMIRA [Suspect]
     Active Substance: ADALIMUMAB
     Indication: RHEUMATOID ARTHRITIS
     Route: 058
     Dates: start: 201709, end: 20180228
  4. METHOTREXATE. [Concomitant]
     Active Substance: METHOTREXATE
     Indication: RHEUMATOID ARTHRITIS

REACTIONS (15)
  - Aortic aneurysm [Not Recovered/Not Resolved]
  - Nasopharyngitis [Unknown]
  - Pneumonia [Unknown]
  - Procedural pain [Recovering/Resolving]
  - Emphysema [Unknown]
  - Blood pressure abnormal [Unknown]
  - Rhinitis [Unknown]
  - Central venous catheterisation [Unknown]
  - Nodule [Unknown]
  - Abdominal abscess [Recovered/Resolved]
  - Peripheral swelling [Unknown]
  - Nephrectomy [Unknown]
  - Impaired healing [Unknown]
  - Gallbladder disorder [Not Recovered/Not Resolved]
  - Postoperative wound infection [Unknown]

NARRATIVE: CASE EVENT DATE: 20180221
